FAERS Safety Report 8422740-X (Version None)
Quarter: 2012Q2

REPORT INFORMATION
  Report Type: 
  Country: None (occurrence: None)
  Receive Date: 20120608
  Receipt Date: 20120530
  Transmission Date: 20120825
  Serious: Yes (Death, Other)
  Sender: FDA-Public Use
  Company Number: US-BRISTOL-MYERS SQUIBB COMPANY-16646291

PATIENT
  Age: 67 Year
  Sex: Male
  Weight: 77 kg

DRUGS (5)
  1. LISINOPRIL [Concomitant]
     Indication: BLOOD PRESSURE
  2. PREDNISONE TAB [Concomitant]
  3. VICODIN [Concomitant]
  4. YERVOY [Suspect]
     Indication: METASTATIC MALIGNANT MELANOMA
     Dosage: INF:2
  5. TRIAMTERENE [Concomitant]

REACTIONS (2)
  - DIARRHOEA [None]
  - GENERAL PHYSICAL HEALTH DETERIORATION [None]
